FAERS Safety Report 8623009-0 (Version None)
Quarter: 2012Q3

REPORT INFORMATION
  Report Type: 
  Country: None (occurrence: None)
  Receive Date: 20120827
  Receipt Date: 20120816
  Transmission Date: 20120928
  Serious: Yes (Hospitalization, Other)
  Sender: FDA-Public Use
  Company Number: US-BAYER-2012-026136

PATIENT
  Age: 26 Year
  Sex: Female
  Weight: 54.875 kg

DRUGS (3)
  1. LORTAB [Concomitant]
     Indication: PAIN
     Dosage: UNK UNK, PRN
     Route: 048
     Dates: start: 20060301, end: 20060306
  2. YASMIN [Suspect]
     Dosage: UNK
     Dates: start: 20050628
  3. IBUPROFEN [Concomitant]
     Indication: PAIN
     Dosage: UNK UNK, PRN
     Route: 048
     Dates: start: 20060301, end: 20060306

REACTIONS (4)
  - CHOLECYSTITIS CHRONIC [None]
  - PAIN [None]
  - PULMONARY EMBOLISM [None]
  - INJURY [None]
